FAERS Safety Report 24801844 (Version 2)
Quarter: 2025Q1

REPORT INFORMATION
  Report Type: Spontaneous
  Country: US (occurrence: US)
  Receive Date: 20250102
  Receipt Date: 20250102
  Transmission Date: 20250409
  Serious: Yes (Other)
  Sender: AMGEN
  Company Number: US-AMGEN-USASP2024256292

PATIENT
  Age: 54 Year
  Sex: Male

DRUGS (2)
  1. ADALIMUMAB [Suspect]
     Active Substance: ADALIMUMAB
     Indication: Crohn^s disease
     Route: 065
  2. PREDNISONE [Suspect]
     Active Substance: PREDNISONE
     Indication: Crohn^s disease
     Dosage: 5 MILLIGRAM, QD
     Route: 065

REACTIONS (4)
  - Plasmablastic lymphoma [Unknown]
  - Anal fistula [Unknown]
  - Epstein-Barr virus infection [Unknown]
  - Antibody test positive [Unknown]
